FAERS Safety Report 15099607 (Version 2)
Quarter: 2018Q3

REPORT INFORMATION
  Report Type: Report from Study
  Country: US (occurrence: US)
  Receive Date: 20180702
  Receipt Date: 20180717
  Transmission Date: 20181010
  Serious: Yes (Other)
  Sender: FDA-Public Use
  Company Number: US-TESARO, INC-US-2018TSO01467

PATIENT
  Sex: Female

DRUGS (3)
  1. ZEJULA [Suspect]
     Active Substance: NIRAPARIB
     Indication: OVARIAN CANCER
     Dosage: 200 MG, QD
     Route: 048
     Dates: start: 20180319
  2. ZEJULA [Suspect]
     Active Substance: NIRAPARIB
     Dosage: 100 MG, QD
     Route: 048
  3. ZEJULA [Suspect]
     Active Substance: NIRAPARIB
     Dosage: 100 MG, QD
     Route: 048

REACTIONS (17)
  - Intentional underdose [Not Recovered/Not Resolved]
  - Nausea [Recovered/Resolved]
  - White blood cell count decreased [Unknown]
  - Brain neoplasm benign [Not Recovered/Not Resolved]
  - Back pain [Unknown]
  - Platelet count decreased [Unknown]
  - Vomiting [Recovered/Resolved]
  - Cholelithiasis [Unknown]
  - Headache [Not Recovered/Not Resolved]
  - Red blood cell count decreased [Unknown]
  - Vision blurred [Not Recovered/Not Resolved]
  - Feeling abnormal [Not Recovered/Not Resolved]
  - Speech disorder [Not Recovered/Not Resolved]
  - Anxiety [Not Recovered/Not Resolved]
  - Insomnia [Unknown]
  - Anger [Not Recovered/Not Resolved]
  - Fatigue [Unknown]
